APPROVED DRUG PRODUCT: DIHYDROERGOTAMINE MESYLATE
Active Ingredient: DIHYDROERGOTAMINE MESYLATE
Strength: 1MG/ML
Dosage Form/Route: INJECTABLE;INJECTION
Application: A212046 | Product #001 | TE Code: AP
Applicant: MILLA PHARMACEUTICALS INC
Approved: Jan 7, 2020 | RLD: No | RS: No | Type: RX